FAERS Safety Report 10525103 (Version 1)
Quarter: 2014Q4

REPORT INFORMATION
  Report Type: Spontaneous
  Country: US (occurrence: None)
  Receive Date: 20141015
  Receipt Date: 20141015
  Transmission Date: 20150528
  Serious: No
  Sender: FDA-Public Use
  Company Number: None

PATIENT
  Age: 40 Year
  Sex: Female
  Weight: 90.72 kg

DRUGS (1)
  1. TOPIRAMATE. [Suspect]
     Active Substance: TOPIRAMATE
     Indication: HEADACHE
     Dosage: 50 MG  2 TABS TWICE DAILY TWICE DAILY TAKEN BY MOUTH
     Route: 048
     Dates: start: 20140918, end: 20141008

REACTIONS (10)
  - Fatigue [None]
  - Pain [None]
  - Oral discomfort [None]
  - Abasia [None]
  - Feeling abnormal [None]
  - Ageusia [None]
  - Asthenia [None]
  - Dyspepsia [None]
  - Myalgia [None]
  - Activities of daily living impaired [None]
